FAERS Safety Report 4764045-4 (Version None)
Quarter: 2005Q3

REPORT INFORMATION
  Report Type: 
  Country: None (occurrence: None)
  Receive Date: 20050906
  Receipt Date: 20050613
  Transmission Date: 20060218
  Serious: No
  Sender: FDA-Public Use
  Company Number: 2005-BP-09934BP

PATIENT
  Age: 83 Year
  Sex: Female

DRUGS (2)
  1. SPIRIVA [Suspect]
     Indication: CHRONIC OBSTRUCTIVE PULMONARY DISEASE
     Dosage: 18 MCG (18 MCG,QD), IH
     Route: 055
     Dates: start: 20050501
  2. COUMADIN [Concomitant]

REACTIONS (1)
  - ANGINA UNSTABLE [None]
